FAERS Safety Report 7297941-7 (Version None)
Quarter: 2011Q1

REPORT INFORMATION
  Report Type: 
  Country: None (occurrence: None)
  Receive Date: 20110217
  Receipt Date: 20110207
  Transmission Date: 20110831
  Serious: Yes (Hospitalization)
  Sender: FDA-Public Use
  Company Number: US-JNJFOC-20110104064

PATIENT
  Sex: Female
  Weight: 98 kg

DRUGS (16)
  1. METHOTREXATE [Suspect]
     Indication: RHEUMATOID ARTHRITIS
     Route: 048
  2. METHOTREXATE [Concomitant]
     Route: 048
  3. CELEXA [Concomitant]
     Route: 048
  4. LEVOTHYROXINE SODIUM [Concomitant]
     Route: 048
  5. GOLIMUMAB [Suspect]
     Route: 058
  6. PLACEBO [Suspect]
     Indication: RHEUMATOID ARTHRITIS
     Route: 058
  7. GOLIMUMAB [Suspect]
     Indication: RHEUMATOID ARTHRITIS
     Route: 058
  8. GOLIMUMAB [Suspect]
     Route: 058
  9. FOLIC ACID [Concomitant]
     Route: 048
  10. CRESTOR [Concomitant]
     Route: 048
  11. HYDRALAZINE [Concomitant]
     Route: 048
  12. AMBIEN [Concomitant]
     Route: 048
  13. OMEPRAZOLE [Concomitant]
     Route: 048
  14. HYDROCHLOROTHIAZIDE [Concomitant]
     Route: 048
  15. CELEBREX [Concomitant]
     Route: 048
  16. CLONAZEPAM [Concomitant]
     Route: 048

REACTIONS (2)
  - OESOPHAGITIS ULCERATIVE [None]
  - GASTRIC ULCER [None]
